FAERS Safety Report 8560011-1 (Version None)
Quarter: 2012Q3

REPORT INFORMATION
  Report Type: 
  Country: None (occurrence: None)
  Receive Date: 20120727
  Receipt Date: 20120727
  Transmission Date: 20120928
  Serious: Yes (Hospitalization)
  Sender: FDA-Public Use
  Company Number: None

PATIENT
  Sex: Female
  Weight: 56.3 kg

DRUGS (10)
  1. METHOTREXATE [Suspect]
     Dosage: 15 MG IT, : 290MG X2  IV
  2. FLUCONAZOLE [Concomitant]
  3. AMPHOTERICIN B [Concomitant]
  4. PIPERACILLIN AND TAZOBACTAM [Concomitant]
  5. FLIGRASTIM [Concomitant]
  6. VANCOMYCIN [Concomitant]
  7. VINCRISTINE SULFATE [Suspect]
     Dosage: 4 MG IV
     Route: 042
  8. VALACYCLOVIR HYDROCHLORIDE [Concomitant]
  9. DEXAMETHASONE [Concomitant]
  10. ETOPOSIDE [Concomitant]

REACTIONS (44)
  - VOMITING [None]
  - HAEMORRHAGE [None]
  - NASAL ULCER [None]
  - INFECTION [None]
  - RESPIRATORY FAILURE [None]
  - OLIGURIA [None]
  - LOWER RESPIRATORY TRACT INFECTION FUNGAL [None]
  - BRADYCARDIA [None]
  - HYPOTENSION [None]
  - DIARRHOEA [None]
  - ABDOMINAL TENDERNESS [None]
  - WEIGHT INCREASED [None]
  - BLOOD BILIRUBIN INCREASED [None]
  - FLUID OVERLOAD [None]
  - CARDIAC ARREST [None]
  - BLOOD CREATININE INCREASED [None]
  - MOUTH HAEMORRHAGE [None]
  - UNEVALUABLE EVENT [None]
  - DRUG CLEARANCE DECREASED [None]
  - TACHYCARDIA [None]
  - EPISTAXIS [None]
  - HYPOXIA [None]
  - MENTAL STATUS CHANGES [None]
  - RENAL IMPAIRMENT [None]
  - SINUSITIS FUNGAL [None]
  - HEPATIC ENZYME INCREASED [None]
  - KLEBSIELLA TEST POSITIVE [None]
  - DISSEMINATED INTRAVASCULAR COAGULATION [None]
  - BLOOD LACTATE DEHYDROGENASE INCREASED [None]
  - PYREXIA [None]
  - ACIDOSIS [None]
  - ORAL HERPES [None]
  - FEBRILE NEUTROPENIA [None]
  - HYPERTENSION [None]
  - HEPATIC FUNCTION ABNORMAL [None]
  - SERUM FERRITIN INCREASED [None]
  - DIZZINESS [None]
  - SKIN EXFOLIATION [None]
  - TACHYPNOEA [None]
  - HYPERAMMONAEMIA [None]
  - ENCEPHALOPATHY [None]
  - DIALYSIS [None]
  - LABILE BLOOD PRESSURE [None]
  - PULSELESS ELECTRICAL ACTIVITY [None]
